APPROVED DRUG PRODUCT: NEOMYCIN SULFATE
Active Ingredient: NEOMYCIN SULFATE
Strength: 500MG
Dosage Form/Route: TABLET;ORAL
Application: A065220 | Product #001 | TE Code: AA
Applicant: AARXION ANDA HOLDING LLC
Approved: Jul 28, 2006 | RLD: No | RS: No | Type: RX